FAERS Safety Report 9029060 (Version 2)
Quarter: 2013Q1

REPORT INFORMATION
  Report Type: Spontaneous
  Country: PL (occurrence: PL)
  Receive Date: 20130122
  Receipt Date: 20130125
  Transmission Date: 20140127
  Serious: Yes (Other)
  Sender: FDA-Public Use
  Company Number: PL-ROCHE-1178929

PATIENT
  Age: 58 Year
  Sex: Female

DRUGS (11)
  1. HERCEPTIN [Suspect]
     Indication: NEOPLASM MALIGNANT
     Dosage: MONOTHERAPY
     Route: 065
     Dates: start: 201210
  2. CAPECITABINE [Suspect]
     Indication: NEOPLASM MALIGNANT
     Dosage: MONOTHERAPY
     Route: 065
  3. INSULIN [Concomitant]
  4. CISPLATIN [Concomitant]
     Dosage: ONLY 2 CYCLES OF THERAPY
     Route: 065
  5. GEMZAR [Concomitant]
     Dosage: ONLY 2 CYCLES OF THERAPY
     Route: 065
  6. VINORELBINE [Concomitant]
  7. FLUOROURACIL [Concomitant]
  8. OXYCONTIN [Concomitant]
  9. PAMIFOS [Concomitant]
     Route: 042
  10. CARBOPLATIN [Concomitant]
  11. PACLITAXEL [Concomitant]

REACTIONS (4)
  - Metastases to bone [Unknown]
  - Metastases to skin [Unknown]
  - Haematotoxicity [Unknown]
  - Renal function test abnormal [Unknown]
